FAERS Safety Report 7093056-1 (Version None)
Quarter: 2010Q4

REPORT INFORMATION
  Report Type: 
  Country: None (occurrence: None)
  Receive Date: 20101110
  Receipt Date: 20101102
  Transmission Date: 20110411
  Serious: Yes (Hospitalization, Other)
  Sender: FDA-Public Use
  Company Number: GB-ELI_LILLY_AND_COMPANY-GB201011001209

PATIENT
  Sex: Male

DRUGS (1)
  1. BYETTA [Suspect]
     Dates: start: 20100928

REACTIONS (5)
  - ABDOMINAL DISTENSION [None]
  - MOBILITY DECREASED [None]
  - OEDEMA PERIPHERAL [None]
  - RASH [None]
  - SWOLLEN TONGUE [None]
